FAERS Safety Report 15396175 (Version 1)
Quarter: 2018Q3

REPORT INFORMATION
  Report Type: Spontaneous
  Country: US (occurrence: US)
  Receive Date: 20180918
  Receipt Date: 20180918
  Transmission Date: 20181010
  Serious: Yes (Hospitalization)
  Sender: FDA-Public Use
  Company Number: US-LEXICON PHARMACEUTICALS, INC-18-1606-01123

PATIENT
  Age: 76 Year
  Sex: Male
  Weight: 77.18 kg

DRUGS (13)
  1. Q10 [Concomitant]
  2. NIACIN. [Concomitant]
     Active Substance: NIACIN
  3. MULTIVITAMIN [Concomitant]
     Active Substance: VITAMINS
  4. TELOTRISTAT ETHYL [Suspect]
     Active Substance: TELOTRISTAT ETHYL
     Indication: CARCINOID TUMOUR
     Route: 048
     Dates: start: 20180425, end: 20180427
  5. LEVOTHYROXINE. [Concomitant]
     Active Substance: LEVOTHYROXINE
     Indication: THYROID DISORDER
  6. TRIAMTERENE?HCTZ [Concomitant]
     Active Substance: HYDROCHLOROTHIAZIDE\TRIAMTERENE
     Indication: BLOOD PRESSURE MANAGEMENT
  7. VIRGIN FISH OIL [Concomitant]
  8. OCTREOTIDE. [Concomitant]
     Active Substance: OCTREOTIDE
  9. ANDROGEL [Concomitant]
     Active Substance: TESTOSTERONE
  10. TRIOXIDE SHOTS [Concomitant]
  11. TELOTRISTAT ETHYL [Suspect]
     Active Substance: TELOTRISTAT ETHYL
     Indication: CARCINOID SYNDROME
     Route: 048
     Dates: start: 20180504, end: 20180808
  12. VENLAFAXINE [Concomitant]
     Active Substance: VENLAFAXINE HYDROCHLORIDE
     Indication: DEPRESSION
  13. CLONAZEPAM. [Concomitant]
     Active Substance: CLONAZEPAM
     Indication: DEPRESSION

REACTIONS (3)
  - Hepatic embolisation [Not Recovered/Not Resolved]
  - Post procedural infection [Not Recovered/Not Resolved]
  - Diarrhoea [Not Recovered/Not Resolved]

NARRATIVE: CASE EVENT DATE: 2018
